FAERS Safety Report 8871539 (Version 2)
Quarter: 2013Q1

REPORT INFORMATION
  Report Type: Spontaneous
  Country: DE (occurrence: DE)
  Receive Date: 20121029
  Receipt Date: 20130114
  Transmission Date: 20140127
  Serious: Yes (Other)
  Sender: FDA-Public Use
  Company Number: DE-UCBSA-069569

PATIENT
  Age: 51 Year
  Sex: Male
  Weight: 85 kg

DRUGS (7)
  1. VIMPAT [Suspect]
     Indication: CONVULSION
     Dates: start: 201208
  2. KEPPRA [Concomitant]
     Indication: CONVULSION
     Dates: start: 201102
  3. RAMIPRIL [Concomitant]
     Indication: BLOOD PRESSURE
     Dates: start: 201012
  4. BACLOFEN [Concomitant]
     Indication: MUSCLE SPASTICITY
     Dosage: DOSE INTAKE: 1/2-1/2-1
     Dates: start: 201012
  5. ASS [Concomitant]
     Indication: HAEMODILUTION
     Dates: start: 201012
  6. CIPRALEX [Concomitant]
     Indication: AFFECTIVE DISORDER
     Dates: start: 201012
  7. SIMVAHEXAL [Concomitant]
     Indication: LIPID METABOLISM DISORDER
     Dates: start: 201012

REACTIONS (3)
  - Gait disturbance [Recovering/Resolving]
  - Gait spastic [Recovering/Resolving]
  - Dizziness [Recovering/Resolving]
